FAERS Safety Report 5167525-5 (Version None)
Quarter: 2006Q4

REPORT INFORMATION
  Report Type: 
  Country: None (occurrence: None)
  Receive Date: 20060830
  Receipt Date: 20060622
  Transmission Date: 20070319
  Serious: Yes (Other)
  Sender: FDA-Public Use
  Company Number: 225857

PATIENT
  Age: 61 Year
  Sex: Female
  Weight: 93.4 kg

DRUGS (7)
  1. XOLAIR [Suspect]
     Indication: ASTHMA
     Dosage: 300 MG, Q2W, SUBCUTANEOUS
     Route: 058
     Dates: start: 20050601
  2. CHEMOTHERAPY NOS (ANTINEOPLASTIC AGENT NOS) [Suspect]
  3. LISINOPRIL [Concomitant]
  4. ADVAIR DISKUS 100/50 [Concomitant]
  5. ALLOPURINOL [Concomitant]
  6. LEVOXYL [Concomitant]
  7. SINGULAIR [Concomitant]

REACTIONS (1)
  - COLON CANCER [None]
